FAERS Safety Report 19899466 (Version 5)
Quarter: 2021Q4

REPORT INFORMATION
  Report Type: Report from Study
  Country: PL (occurrence: PL)
  Receive Date: 20210929
  Receipt Date: 20211105
  Transmission Date: 20220303
  Serious: Yes (Hospitalization)
  Sender: FDA-Public Use
  Company Number: PL-TG THERAPEUTICS INC.-TGT002166

PATIENT

DRUGS (7)
  1. UBLITUXIMAB [Suspect]
     Active Substance: UBLITUXIMAB
     Indication: Non-Hodgkin^s lymphoma
     Dosage: 900 MILLIGRAM, ONCE
     Route: 042
     Dates: start: 20210924
  2. UMBRALISIB [Suspect]
     Active Substance: UMBRALISIB
     Indication: Non-Hodgkin^s lymphoma
     Dosage: 800 MILLIGRAM, QD
     Route: 048
     Dates: start: 20210924, end: 20211012
  3. ALLOPURINOL [Concomitant]
     Active Substance: ALLOPURINOL
     Indication: Prophylaxis
     Dosage: 300 MILLIGRAM, QD
     Route: 048
     Dates: start: 20210921
  4. SODIUM CHLORIDE [Concomitant]
     Active Substance: SODIUM CHLORIDE
     Indication: Prophylaxis
     Dosage: 500 MILLILITER, BID
     Route: 042
     Dates: start: 20210924
  5. ACYCLOVIR [Concomitant]
     Active Substance: ACYCLOVIR
     Indication: Infection prophylaxis
     Dosage: 800 MILLIGRAM, QD
     Route: 048
     Dates: start: 20210921
  6. BISEPTOL [Concomitant]
     Active Substance: SULFAMETHOXAZOLE\TRIMETHOPRIM
     Indication: Antifungal prophylaxis
     Dosage: 960 MILLIGRAM, TIW
     Route: 048
     Dates: start: 20210921
  7. ASPIRIN [Concomitant]
     Active Substance: ASPIRIN
     Indication: Prophylaxis
     Dosage: 150 MILLIGRAM, QD
     Route: 048
     Dates: start: 2000

REACTIONS (1)
  - Infected neoplasm [Not Recovered/Not Resolved]

NARRATIVE: CASE EVENT DATE: 20210926
